FAERS Safety Report 25271094 (Version 2)
Quarter: 2025Q2

REPORT INFORMATION
  Report Type: Spontaneous
  Country: CA (occurrence: CA)
  Receive Date: 20250506
  Receipt Date: 20250516
  Transmission Date: 20250716
  Serious: Yes (Hospitalization)
  Sender: TEVA
  Company Number: CA-TEVA-VS-3327636

PATIENT
  Age: 58 Year
  Sex: Male

DRUGS (2)
  1. DOXORUBICIN [Suspect]
     Active Substance: DOXORUBICIN
     Indication: Hepatocellular carcinoma
     Route: 065
     Dates: start: 202403, end: 202403
  2. ASPIRIN [Concomitant]
     Active Substance: ASPIRIN
     Indication: Antiplatelet therapy
     Route: 065
     Dates: start: 2024

REACTIONS (5)
  - Toxic cardiomyopathy [Recovering/Resolving]
  - Akinesia [Recovering/Resolving]
  - Hypokinesia [Recovering/Resolving]
  - Coronary artery disease [Recovering/Resolving]
  - Cardiac failure acute [Recovering/Resolving]

NARRATIVE: CASE EVENT DATE: 20240101
